FAERS Safety Report 4447142-2 (Version None)
Quarter: 2004Q3

REPORT INFORMATION
  Report Type: 
  Country: None (occurrence: None)
  Receive Date: 20040908
  Receipt Date: 20040908
  Transmission Date: 20050211
  Serious: Yes (Other)
  Sender: FDA-Public Use
  Company Number: None

PATIENT
  Age: 49 Year
  Sex: Female
  Weight: 63.5036 kg

DRUGS (3)
  1. DURAGESIC [Suspect]
     Indication: BACK DISORDER
     Dosage: 50 MCG/75 MCG 100 MCG
     Route: 062
  2. DURAGESIC [Suspect]
     Indication: INTERVERTEBRAL DISC DEGENERATION
     Dosage: 50 MCG/75 MCG 100 MCG
     Route: 062
  3. DURAGESIC [Suspect]
     Indication: INTERVERTEBRAL DISC PROTRUSION
     Dosage: 50 MCG/75 MCG 100 MCG
     Route: 062

REACTIONS (2)
  - DRUG EFFECT DECREASED [None]
  - PHARMACEUTICAL PRODUCT COMPLAINT [None]
